FAERS Safety Report 18151526 (Version 1)
Quarter: 2020Q3

REPORT INFORMATION
  Report Type: Report from Study
  Country: US (occurrence: US)
  Receive Date: 20200814
  Receipt Date: 20200814
  Transmission Date: 20201103
  Serious: Yes (Other)
  Sender: FDA-Public Use
  Company Number: US-BAYER-2020-138563

PATIENT
  Age: 68 Year
  Sex: Male

DRUGS (1)
  1. STIVARGA [Suspect]
     Active Substance: REGORAFENIB
     Indication: COLORECTAL CANCER
     Dosage: 160 MG DAILY WITH  LOW FAT BREAKFAST FOR 21 DAYS ON AND 7 DAYS OFF
     Route: 048
     Dates: start: 20200702, end: 20200728

REACTIONS (14)
  - Rhinorrhoea [Not Recovered/Not Resolved]
  - Dehydration [Recovered/Resolved]
  - Dry eye [Not Recovered/Not Resolved]
  - Dry throat [Not Recovered/Not Resolved]
  - Hypogeusia [Not Recovered/Not Resolved]
  - Cough [Not Recovered/Not Resolved]
  - Decreased appetite [Not Recovered/Not Resolved]
  - Weight decreased [Not Recovered/Not Resolved]
  - Productive cough [Not Recovered/Not Resolved]
  - Skin exfoliation [Not Recovered/Not Resolved]
  - Eye pain [Not Recovered/Not Resolved]
  - Temperature intolerance [Not Recovered/Not Resolved]
  - Dyspnoea [Not Recovered/Not Resolved]
  - Chronic sinusitis [Not Recovered/Not Resolved]

NARRATIVE: CASE EVENT DATE: 20200702
